FAERS Safety Report 8521149-8 (Version None)
Quarter: 2012Q3

REPORT INFORMATION
  Report Type: 
  Country: None (occurrence: None)
  Receive Date: 20120712
  Receipt Date: 20120712
  Transmission Date: 20120928
  Serious: Yes (Disabling)
  Sender: FDA-Public Use
  Company Number: None

PATIENT
  Sex: Female

DRUGS (6)
  1. ABILIFY [Suspect]
     Indication: POST-TRAUMATIC STRESS DISORDER
     Dosage: PO COUPLE MONTHS
     Route: 048
  2. ABILIFY [Suspect]
     Indication: BIPOLAR DISORDER
     Dosage: PO COUPLE MONTHS
     Route: 048
  3. ABILIFY [Suspect]
     Indication: ATTENTION DEFICIT/HYPERACTIVITY DISORDER
     Dosage: PO COUPLE MONTHS
     Route: 048
  4. LEXAPRO [Suspect]
     Indication: ATTENTION DEFICIT/HYPERACTIVITY DISORDER
     Dosage: PO COUPLE MONTHS
     Route: 048
  5. LEXAPRO [Suspect]
     Indication: POST-TRAUMATIC STRESS DISORDER
     Dosage: PO COUPLE MONTHS
     Route: 048
  6. LEXAPRO [Suspect]
     Indication: BIPOLAR DISORDER
     Dosage: PO COUPLE MONTHS
     Route: 048

REACTIONS (6)
  - MUSCLE TWITCHING [None]
  - AKATHISIA [None]
  - DYSPHEMIA [None]
  - TIC [None]
  - SPEECH DISORDER [None]
  - GAIT DISTURBANCE [None]
